FAERS Safety Report 6755754-6 (Version None)
Quarter: 2010Q2

REPORT INFORMATION
  Report Type: 
  Country: None (occurrence: None)
  Receive Date: 20100604
  Receipt Date: 20100520
  Transmission Date: 20101027
  Serious: Yes (Hospitalization)
  Sender: FDA-Public Use
  Company Number: BE-CELGENEUS-013-C5013-10041686

PATIENT
  Sex: Female
  Weight: 95 kg

DRUGS (4)
  1. CC-5013 [Suspect]
     Indication: MANTLE CELL LYMPHOMA
     Route: 048
     Dates: start: 20100323, end: 20100413
  2. CC-5013 [Suspect]
     Route: 048
     Dates: start: 20100504
  3. ZYLORIC [Concomitant]
     Indication: PROPHYLAXIS
     Route: 048
     Dates: start: 20100323
  4. NEO RECORMON [Concomitant]
     Route: 058
     Dates: start: 20100406, end: 20100414

REACTIONS (1)
  - PNEUMONIA [None]
